FAERS Safety Report 10863932 (Version 2)
Quarter: 2015Q1

REPORT INFORMATION
  Report Type: Spontaneous
  Country: CN (occurrence: CN)
  Receive Date: 20150223
  Receipt Date: 20150224
  Transmission Date: 20150721
  Serious: Yes (Hospitalization)
  Sender: FDA-Public Use
  Company Number: CN-GLAXOSMITHKLINE-CN2015GSK020660

PATIENT
  Age: 79 Year
  Sex: Female

DRUGS (5)
  1. LAMOTRIGINE. [Suspect]
     Active Substance: LAMOTRIGINE
     Dosage: 75 MG, BID
     Dates: start: 20131015
  2. TRILEPTAL [Concomitant]
     Active Substance: OXCARBAZEPINE
     Indication: TEMPORAL LOBE EPILEPSY
     Dosage: 150 MG, BID
  3. LAMOTRIGINE. [Suspect]
     Active Substance: LAMOTRIGINE
     Indication: TEMPORAL LOBE EPILEPSY
     Dosage: 25 MG, QD
     Dates: start: 20130909, end: 20131002
  4. LAMOTRIGINE. [Suspect]
     Active Substance: LAMOTRIGINE
     Dosage: 50 MG, BID
     Dates: start: 20131002, end: 20131015
  5. TRILEPTAL [Concomitant]
     Active Substance: OXCARBAZEPINE
     Dosage: 450 MG, BID

REACTIONS (8)
  - Memory impairment [Recovered/Resolved]
  - Speech disorder [Recovered/Resolved]
  - Pruritus generalised [Unknown]
  - Delusion [Recovered/Resolved]
  - Rash maculo-papular [Unknown]
  - Mental disorder [Recovered/Resolved]
  - Illusion [Recovered/Resolved]
  - Aphasia [Recovered/Resolved]

NARRATIVE: CASE EVENT DATE: 20131020
